FAERS Safety Report 7469693-9 (Version None)
Quarter: 2011Q2

REPORT INFORMATION
  Report Type: 
  Country: None (occurrence: None)
  Receive Date: 20110510
  Receipt Date: 20110505
  Transmission Date: 20111010
  Serious: Yes (Hospitalization)
  Sender: FDA-Public Use
  Company Number: DE-BRISTOL-MYERS SQUIBB COMPANY-15432958

PATIENT
  Age: 71 Year
  Sex: Male
  Weight: 83 kg

DRUGS (5)
  1. FOLSAN [Concomitant]
     Dates: start: 20090921
  2. VITAMIN B-12 [Concomitant]
     Dates: start: 20090921
  3. ALIMTA [Suspect]
     Indication: NON-SMALL CELL LUNG CANCER
     Route: 042
     Dates: start: 20091027
  4. ERBITUX [Suspect]
     Indication: NON-SMALL CELL LUNG CANCER
     Dosage: 400MG/M2(395MG), DAY 1 CYCLE 1 250MG/M2, WEEKLY, UNK-ONG
     Route: 042
     Dates: start: 20091027
  5. CISPLATIN [Suspect]
     Indication: NON-SMALL CELL LUNG CANCER
     Dosage: 500MG/M2(373.5MG)
     Route: 042
     Dates: start: 20091027

REACTIONS (3)
  - RASH [None]
  - THROMBOCYTOPENIA [None]
  - MUCOSAL INFLAMMATION [None]
